FAERS Safety Report 9715732 (Version 1)
Quarter: 2013Q4

REPORT INFORMATION
  Report Type: Spontaneous
  Country: US (occurrence: US)
  Receive Date: 20131127
  Receipt Date: 20131127
  Transmission Date: 20140711
  Serious: Yes (Hospitalization)
  Sender: FDA-Public Use
  Company Number: US-JNJFOC-20131112007

PATIENT
  Age: 33 Year
  Sex: Female

DRUGS (4)
  1. REMICADE [Suspect]
     Indication: CROHN^S DISEASE
     Dosage: PATIENT ON INFLIXIMAB OVER 10 YEARS AGO??PATIENT USED 3 VIALS
     Route: 042
  2. REMICADE [Suspect]
     Indication: CROHN^S DISEASE
     Route: 042
     Dates: start: 201308
  3. IMODIUM OTC [Concomitant]
     Indication: DIARRHOEA
     Dosage: SINCE 1997 OR 1998
     Route: 048
  4. PERCOCET [Concomitant]
     Indication: PAIN
     Dosage: 5-325 MG
     Route: 048
     Dates: start: 1998

REACTIONS (6)
  - Abnormal loss of weight [Not Recovered/Not Resolved]
  - Blood count abnormal [Recovered/Resolved]
  - Abdominal pain upper [Not Recovered/Not Resolved]
  - Decreased appetite [Not Recovered/Not Resolved]
  - Malaise [Not Recovered/Not Resolved]
  - Headache [Unknown]
